FAERS Safety Report 20877868 (Version 2)
Quarter: 2022Q4

REPORT INFORMATION
  Report Type: Spontaneous
  Country: US (occurrence: US)
  Receive Date: 20220526
  Receipt Date: 20221222
  Transmission Date: 20230113
  Serious: No
  Sender: FDA-Public Use
  Company Number: US-PFIZER INC-202200754448

PATIENT
  Age: 67 Year
  Sex: Female

DRUGS (2)
  1. LIOTHYRONINE SODIUM [Suspect]
     Active Substance: LIOTHYRONINE SODIUM
     Dosage: UNK
  2. MANNITOL [Suspect]
     Active Substance: MANNITOL
     Dosage: UNK

REACTIONS (2)
  - Allergic reaction to excipient [Unknown]
  - Illness [Unknown]
